FAERS Safety Report 5812365-4 (Version None)
Quarter: 2008Q3

REPORT INFORMATION
  Report Type: 
  Country: None (occurrence: None)
  Receive Date: 20080716
  Receipt Date: 20080704
  Transmission Date: 20090109
  Serious: Yes (Life-Threatening, Hospitalization)
  Sender: FDA-Public Use
  Company Number: FR-PFIZER INC-2008043004

PATIENT
  Sex: Male

DRUGS (3)
  1. CHANTIX [Suspect]
     Indication: SMOKING CESSATION THERAPY
     Route: 048
  2. PREVISCAN [Interacting]
     Dosage: TEXT:ALTERNATION: 1 AND 3/4 EVERY OTHER DAY-FREQ:INTERVAL: EVERY OTHER DAY
  3. PROPRANOLOL [Concomitant]
     Dosage: DAILY DOSE:160MG
     Route: 048

REACTIONS (3)
  - DRUG INTERACTION [None]
  - HAEMATURIA [None]
  - INTERNATIONAL NORMALISED RATIO INCREASED [None]
